FAERS Safety Report 6559463-8 (Version None)
Quarter: 2010Q1

REPORT INFORMATION
  Report Type: 
  Country: None (occurrence: None)
  Receive Date: 20100129
  Receipt Date: 20090902
  Transmission Date: 20100710
  Serious: No
  Sender: FDA-Public Use
  Company Number: US-ABBOTT-09P-163-0595826-00

PATIENT
  Sex: Female

DRUGS (7)
  1. HUMIRA [Suspect]
     Indication: PSORIATIC ARTHROPATHY
     Route: 058
     Dates: start: 20080101
  2. ALLEGRA [Concomitant]
     Indication: HYPERSENSITIVITY
  3. ALLEGRA [Concomitant]
     Indication: ASTHMA
  4. ALBUTEROL [Concomitant]
     Indication: ASTHMA
     Route: 055
  5. GLUCOSE PUMP [Concomitant]
     Indication: DIABETES MELLITUS
     Dosage: IMPLANTED
  6. SYNTHROID [Concomitant]
     Indication: HYPOTHYROIDISM
  7. UNKNOWN MEDICATION [Concomitant]
     Indication: DEPRESSION

REACTIONS (2)
  - BLOOD GLUCOSE INCREASED [None]
  - IRITIS [None]
